FAERS Safety Report 10062199 (Version 1)
Quarter: 2014Q1

REPORT INFORMATION
  Report Type: Spontaneous
  Country: US (occurrence: None)
  Receive Date: 20140312
  Receipt Date: 20140312
  Transmission Date: 20141002
  Serious: Yes (Hospitalization)
  Sender: FDA-Public Use
  Company Number: 1000051953

PATIENT
  Age: 62 Year
  Sex: Female

DRUGS (8)
  1. SAVELLA (MILNACIPRAN HYDROCHLORIDE) (12.5 MILLIGRAM, TABLETS) [Suspect]
     Indication: FIBROMYALGIA
     Route: 048
     Dates: start: 20131030, end: 20131031
  2. SAVELLA (MILNACIPRAN HYDROCHLORIDE) (50 MILLIGRAM, TABLETS) [Suspect]
     Indication: FIBROMYALGIA
     Dosage: 100 MG (50 MG, 2 IN 1 D)
     Route: 048
     Dates: start: 20131113, end: 20131121
  3. ATENOLOL (ATENOLOL) (ATENOLOL) [Concomitant]
  4. MOBIX (MELOXICAM) (MELOXICAM) [Concomitant]
  5. ZANAFLEX (TIZANIDINE) HYDROCHLORIDE) (TIZANIDINE HYDROCHLORIDE) [Concomitant]
  6. ULTRAM (TRAMADOL) (TRAMADOL) [Concomitant]
  7. NEXIUM (ESOMEPRAZOLE) (ESOMEPRAZOLE) [Concomitant]
  8. AMITIZA (LUBIPROSTONE) (LUBIPROSTONE) [Concomitant]

REACTIONS (1)
  - Suicidal ideation [None]
